FAERS Safety Report 8969476 (Version 1)
Quarter: 2012Q4

REPORT INFORMATION
  Report Type: 
  Country: US (occurrence: US)
  Receive Date: 20121218
  Receipt Date: 20121218
  Transmission Date: 20130627
  Serious: Yes (Hospitalization)
  Sender: FDA-Public Use
  Company Number: US-ELI_LILLY_AND_COMPANY-US201212002999

PATIENT
  Age: 60 Year
  Sex: Female

DRUGS (4)
  1. CYMBALTA [Suspect]
     Indication: DEPRESSION
     Dosage: 60 mg, bid
  2. TRAZODONE [Concomitant]
  3. DILAUDID [Concomitant]
  4. ROCEPHIN [Concomitant]

REACTIONS (1)
  - Pancreatitis acute [Unknown]
